FAERS Safety Report 8537719-7 (Version None)
Quarter: 2012Q3

REPORT INFORMATION
  Report Type: 
  Country: None (occurrence: None)
  Receive Date: 20120725
  Receipt Date: 20120718
  Transmission Date: 20120928
  Serious: Yes (Other)
  Sender: FDA-Public Use
  Company Number: PHHY2012IN061788

PATIENT
  Age: 35 Year
  Sex: Male

DRUGS (4)
  1. BLEOMYCIN SULFATE [Suspect]
     Indication: HODGKIN'S DISEASE
     Dosage: UNK
  2. DACARBAZINE [Suspect]
     Indication: HODGKIN'S DISEASE
  3. DOXORUBICIN HYDROCHLORIDE [Suspect]
     Indication: HODGKIN'S DISEASE
  4. VINBLASTINE SULFATE [Suspect]
     Indication: HODGKIN'S DISEASE

REACTIONS (4)
  - CYSTITIS [None]
  - BLADDER NEOPLASM [None]
  - BLADDER TRANSITIONAL CELL CARCINOMA [None]
  - DYSURIA [None]
